FAERS Safety Report 7252429-4 (Version None)
Quarter: 2011Q1

REPORT INFORMATION
  Report Type: 
  Country: None (occurrence: None)
  Receive Date: 20110129
  Receipt Date: 20100114
  Transmission Date: 20110831
  Serious: No
  Sender: FDA-Public Use
  Company Number: US-ABBOTT-09P-163-0605471-00

PATIENT
  Sex: Female
  Weight: 63.56 kg

DRUGS (11)
  1. CAFFEINE [Concomitant]
     Dosage: DIET COKE OR TEA X 2.5 WEEKLY
     Route: 048
     Dates: start: 20090601, end: 20090709
  2. NEXIUM [Concomitant]
     Indication: DYSPEPSIA
     Route: 048
     Dates: start: 20090622, end: 20090709
  3. HUMIRA [Suspect]
     Indication: CROHN'S DISEASE
     Dates: start: 20081116, end: 20090517
  4. GAS-X [Concomitant]
     Indication: PRODUCT USED FOR UNKNOWN INDICATION
     Route: 048
     Dates: start: 20081116, end: 20090622
  5. PRENATAL VITAMINS [Concomitant]
     Indication: PREGNANCY
     Route: 048
     Dates: start: 20081116, end: 20090709
  6. ASPIRIN [Concomitant]
     Indication: PREGNANCY
     Route: 048
     Dates: start: 20081116, end: 20090709
  7. FOLIC ACID [Concomitant]
     Indication: CROHN'S DISEASE
     Route: 048
     Dates: start: 20090629, end: 20090709
  8. LOVENOX [Concomitant]
     Indication: ANTICOAGULANT THERAPY
     Route: 050
     Dates: start: 20081215, end: 20090709
  9. CAFFEINE [Concomitant]
     Indication: PRODUCT USED FOR UNKNOWN INDICATION
     Route: 048
     Dates: start: 20081116, end: 20090801
  10. PROGESTERONE [Concomitant]
     Indication: PREGNANCY
     Route: 050
     Dates: start: 20081116, end: 20090107
  11. MACROBID [Concomitant]
     Indication: PRODUCT USED FOR UNKNOWN INDICATION
     Route: 048
     Dates: start: 20090706, end: 20090708

REACTIONS (5)
  - DYSPEPSIA [None]
  - FALL [None]
  - BLOOD IRON DECREASED [None]
  - PYREXIA [None]
  - HEADACHE [None]
